FAERS Safety Report 7144466-5 (Version None)
Quarter: 2010Q4

REPORT INFORMATION
  Report Type: 
  Country: None (occurrence: None)
  Receive Date: 20101208
  Receipt Date: 20101124
  Transmission Date: 20110411
  Serious: Yes (Hospitalization)
  Sender: FDA-Public Use
  Company Number: FR-BAYER-2010-000553

PATIENT

DRUGS (6)
  1. NAPROXEN SODIUM [Suspect]
     Dosage: 750 MG, QD
     Route: 048
     Dates: start: 20100904, end: 20100914
  2. CELIPROLOL BIOGARAN [Concomitant]
  3. VALSARTAN  AND HYDROCHLOROTHIAZIDE [Concomitant]
  4. CETIRIZINE [Concomitant]
  5. SIMVASTATIN [Concomitant]
  6. VIVELLE-DOT [Concomitant]

REACTIONS (4)
  - CHEST PAIN [None]
  - DYSPNOEA [None]
  - TACHYCARDIA [None]
  - URTICARIA [None]
